FAERS Safety Report 24201427 (Version 2)
Quarter: 2024Q3

REPORT INFORMATION
  Report Type: Report from Study
  Country: DE (occurrence: None)
  Receive Date: 20240812
  Receipt Date: 20240906
  Transmission Date: 20241017
  Serious: Yes (Death, Life-Threatening)
  Sender: ASTRAZENECA
  Company Number: 2024A182743

PATIENT
  Age: 83 Year
  Sex: Female

DRUGS (3)
  1. OLAPARIB [Suspect]
     Active Substance: OLAPARIB
     Indication: Ovarian cancer
     Dosage: 600 MG
     Route: 048
     Dates: start: 20240323
  2. METOPROLOL TARTRATE [Concomitant]
     Active Substance: METOPROLOL TARTRATE
     Route: 048
     Dates: start: 2017
  3. BEVACIZUMAB [Concomitant]
     Active Substance: BEVACIZUMAB
     Indication: Ovarian cancer
     Route: 048
     Dates: start: 20240405

REACTIONS (1)
  - Ascites [Fatal]

NARRATIVE: CASE EVENT DATE: 20240313
